FAERS Safety Report 6489542-5 (Version None)
Quarter: 2009Q4

REPORT INFORMATION
  Report Type: 
  Country: None (occurrence: None)
  Receive Date: 20091210
  Receipt Date: 20091002
  Transmission Date: 20100525
  Serious: No
  Sender: FDA-Public Use
  Company Number: US-AMGEN-KDL367324

PATIENT
  Sex: Female

DRUGS (3)
  1. ENBREL [Suspect]
     Indication: RHEUMATOID ARTHRITIS
     Route: 058
     Dates: start: 20090809
  2. PLAQUENIL [Concomitant]
     Route: 048
  3. LEFLUNOMIDE [Concomitant]
     Route: 048

REACTIONS (5)
  - HEADACHE [None]
  - NODULE ON EXTREMITY [None]
  - PRODUCTIVE COUGH [None]
  - SPUTUM DISCOLOURED [None]
  - THERAPEUTIC RESPONSE DECREASED [None]
